FAERS Safety Report 17515299 (Version 1)
Quarter: 2020Q1

REPORT INFORMATION
  Report Type: Spontaneous
  Country: DE (occurrence: DE)
  Receive Date: 20200309
  Receipt Date: 20200309
  Transmission Date: 20200409
  Serious: Yes (Hospitalization, Other)
  Sender: FDA-Public Use
  Company Number: DE-009507513-2003DEU000742

PATIENT
  Age: 54 Year
  Sex: Male

DRUGS (3)
  1. PEMBROLIZUMAB. [Suspect]
     Active Substance: PEMBROLIZUMAB
     Dosage: UNK
  2. AXITINIB [Suspect]
     Active Substance: AXITINIB
     Indication: METASTATIC RENAL CELL CARCINOMA
     Dosage: 5 MG, 2X/DAY
  3. AXITINIB [Suspect]
     Active Substance: AXITINIB
     Dosage: 7 MG, 2X/DAY

REACTIONS (3)
  - Pyrexia [Unknown]
  - Multiple sclerosis relapse [Unknown]
  - Blood pressure systolic increased [Unknown]
